FAERS Safety Report 5456053-5 (Version None)
Quarter: 2007Q3

REPORT INFORMATION
  Report Type: 
  Country: None (occurrence: None)
  Receive Date: 20070918
  Receipt Date: 20070906
  Transmission Date: 20080115
  Serious: Yes (Hospitalization)
  Sender: FDA-Public Use
  Company Number: US-ROCHE-514242

PATIENT
  Age: 44 Year
  Sex: Male
  Weight: 65 kg

DRUGS (6)
  1. PEG-INTERFERON ALFA 2A (RO 25-8310) [Suspect]
     Indication: HEPATITIS C
     Route: 058
     Dates: start: 20070430, end: 20070813
  2. RIBAVIRIN [Suspect]
     Indication: HEPATITIS C
     Route: 048
     Dates: start: 20070430, end: 20070820
  3. VX-950 [Suspect]
     Indication: HEPATITIS C
     Route: 048
     Dates: start: 20070430, end: 20070819
  4. ZOLOFT [Concomitant]
     Route: 048
     Dates: start: 20070713
  5. QUETAPINE FUMARATE [Concomitant]
     Dosage: TRADE NAME REPORTED AS SEROQUIL.
     Route: 048
     Dates: start: 20070601
  6. ADVIL LIQUI-GELS [Concomitant]

REACTIONS (3)
  - CHOLELITHIASIS [None]
  - PANCREATITIS [None]
  - PANCYTOPENIA [None]
